FAERS Safety Report 4637130-5 (Version None)
Quarter: 2005Q2

REPORT INFORMATION
  Report Type: 
  Country: None (occurrence: None)
  Receive Date: 20050325
  Receipt Date: 20041215
  Transmission Date: 20051028
  Serious: No
  Sender: FDA-Public Use
  Company Number: USA040875201

PATIENT
  Age: 78 Year
  Sex: Female
  Weight: 64 kg

DRUGS (9)
  1. FORTEO [Suspect]
     Indication: OSTEOPOROSIS
     Dosage: 20 UG/1 DAY
     Dates: start: 20040803
  2. DURAGESIC (FENTANYL) [Concomitant]
  3. AVANDIA [Concomitant]
  4. LOTENSIN [Concomitant]
  5. LOTREL [Concomitant]
  6. QUININE [Concomitant]
  7. COUMADIN [Concomitant]
  8. DEMADEX [Concomitant]
  9. DIGOXIN [Concomitant]

REACTIONS (3)
  - ANOREXIA [None]
  - INJECTION SITE IRRITATION [None]
  - WEIGHT DECREASED [None]
